FAERS Safety Report 4774336-9 (Version None)
Quarter: 2005Q3

REPORT INFORMATION
  Report Type: 
  Country: None (occurrence: None)
  Receive Date: 20050921
  Receipt Date: 20050909
  Transmission Date: 20060218
  Serious: Yes (Hospitalization)
  Sender: FDA-Public Use
  Company Number: US-JNJFOC-20050902589

PATIENT
  Sex: Male
  Weight: 113.4 kg

DRUGS (8)
  1. REMICADE [Suspect]
     Route: 042
  2. REMICADE [Suspect]
     Indication: RHEUMATOID ARTHRITIS
     Route: 042
  3. COUMADIN [Suspect]
  4. PREDNISONE [Concomitant]
  5. METHOTREXATE [Concomitant]
  6. PAIN KILLERS [Concomitant]
     Indication: BACK PAIN
  7. GLUCOPHAGE [Concomitant]
     Indication: DIABETES MELLITUS
  8. MAVIK [Concomitant]
     Indication: HYPERTENSION

REACTIONS (2)
  - HAEMORRHAGE [None]
  - THROMBOSIS [None]
